FAERS Safety Report 21136080 (Version 2)
Quarter: 2022Q3

REPORT INFORMATION
  Report Type: Spontaneous
  Country: JP (occurrence: JP)
  Receive Date: 20220727
  Receipt Date: 20220923
  Transmission Date: 20221027
  Serious: Yes (Death, Hospitalization, Other)
  Sender: FDA-Public Use
  Company Number: JP-002147023-NVSJ2022JP094250

PATIENT

DRUGS (1)
  1. RUXOLITINIB [Suspect]
     Active Substance: RUXOLITINIB
     Indication: Primary myelofibrosis
     Dosage: UNK
     Route: 048

REACTIONS (7)
  - Anaemia [Unknown]
  - Disseminated cryptococcosis [Fatal]
  - Leukocytosis [Unknown]
  - Disseminated tuberculosis [Fatal]
  - Herpes zoster [Unknown]
  - Thrombocytopenia [Unknown]
  - Urinary tract infection [Unknown]
